FAERS Safety Report 9378186 (Version 5)
Quarter: 2013Q4

REPORT INFORMATION
  Report Type: Report from Study
  Country: JP (occurrence: JP)
  Receive Date: 20130701
  Receipt Date: 20131203
  Transmission Date: 20140711
  Serious: Yes (Hospitalization)
  Sender: FDA-Public Use
  Company Number: JP-GLAXOSMITHKLINE-B0903982A

PATIENT
  Age: 19 Year
  Sex: Female
  Weight: 58 kg

DRUGS (4)
  1. LAMICTAL [Suspect]
     Indication: BIPOLAR II DISORDER
     Dosage: 25MG PER DAY
     Route: 048
     Dates: start: 20130611, end: 20130623
  2. DEPAKENE-R [Suspect]
     Indication: DEPRESSION
     Dosage: 200MG TWICE PER DAY
     Route: 048
  3. WINTERMIN [Suspect]
     Indication: MANIA
     Route: 048
  4. ZOLPIDEM TARTRATE [Suspect]
     Dosage: 10MG PER DAY
     Route: 048

REACTIONS (3)
  - Erythema multiforme [Recovered/Resolved]
  - Pyrexia [Recovered/Resolved]
  - Intentional self-injury [Recovering/Resolving]
